FAERS Safety Report 10377599 (Version 1)
Quarter: 2014Q3

REPORT INFORMATION
  Report Type: Spontaneous
  Country: US (occurrence: None)
  Receive Date: 20140811
  Receipt Date: 20140811
  Transmission Date: 20150326
  Serious: No
  Sender: FDA-Public Use
  Company Number: None

PATIENT
  Age: 62 Year
  Sex: Male
  Weight: 89.3 kg

DRUGS (1)
  1. CYTARABINE. [Suspect]
     Active Substance: CYTARABINE
     Dates: end: 20140725

REACTIONS (8)
  - Chest pain [None]
  - Acute myocardial infarction [None]
  - Troponin increased [None]
  - Chest discomfort [None]
  - Bacteraemia [None]
  - Pancytopenia [None]
  - Neutropenia [None]
  - Fungal infection [None]

NARRATIVE: CASE EVENT DATE: 20140807
